FAERS Safety Report 7851626-4 (Version None)
Quarter: 2011Q4

REPORT INFORMATION
  Report Type: 
  Country: None (occurrence: None)
  Receive Date: 20111026
  Receipt Date: 20111017
  Transmission Date: 20120403
  Serious: Yes (Hospitalization)
  Sender: FDA-Public Use
  Company Number: PHHY2011MX92018

PATIENT
  Age: 66 Year
  Sex: Female

DRUGS (3)
  1. DIOVAN HCT [Suspect]
     Indication: HYPERTENSION
     Dosage: 1 TABLET (320/12.5 MG) PER DAY
     Dates: start: 20081001, end: 20111001
  2. INSULIN [Concomitant]
     Dosage: 20 U, UNK
     Dates: start: 20101001
  3. JANUVIA [Concomitant]
     Dosage: 1 TABLET PER DAY
     Dates: start: 20021001

REACTIONS (3)
  - EMOTIONAL DISORDER [None]
  - BLOOD PRESSURE INADEQUATELY CONTROLLED [None]
  - BLOOD PRESSURE INCREASED [None]
